FAERS Safety Report 7302622-7 (Version None)
Quarter: 2011Q1

REPORT INFORMATION
  Report Type: 
  Country: None (occurrence: None)
  Receive Date: 20110218
  Receipt Date: 20110210
  Transmission Date: 20110831
  Serious: Yes (Death, Other)
  Sender: FDA-Public Use
  Company Number: AT-GENZYME-MOZO-1000388

PATIENT
  Sex: Male

DRUGS (3)
  1. NEUPOGEN [Concomitant]
     Indication: HAEMATOPOIETIC STEM CELL MOBILISATION
  2. MOZOBIL [Suspect]
     Indication: HAEMATOPOIETIC STEM CELL MOBILISATION
     Route: 058
  3. MOZOBIL [Suspect]
     Indication: TESTIS CANCER

REACTIONS (6)
  - SEPSIS [None]
  - ACUTE RESPIRATORY DISTRESS SYNDROME [None]
  - MUCOSAL INFLAMMATION [None]
  - PYREXIA [None]
  - PNEUMONIA [None]
  - LIVER DISORDER [None]
